FAERS Safety Report 5014413-0 (Version None)
Quarter: 2006Q2

REPORT INFORMATION
  Report Type: 
  Country: None (occurrence: None)
  Receive Date: 20060525
  Receipt Date: 20060515
  Transmission Date: 20061013
  Serious: Yes (Hospitalization, Other)
  Sender: FDA-Public Use
  Company Number: HQWYE772930NOV05

PATIENT
  Age: 35 Year
  Sex: Male
  Weight: 99.43 kg

DRUGS (9)
  1. NEORAL [Suspect]
     Indication: PROPHYLAXIS AGAINST TRANSPLANT REJECTION
     Dosage: 200 MG 2X PER 1 DAY, ORAL
     Route: 048
     Dates: start: 20050815, end: 20051128
  2. CELLCEPT [Suspect]
     Dosage: 1000 (UNIT NOT SPECIFIED) DAILY, ORAL
     Route: 048
     Dates: start: 20050815
  3. NORVASX (AMLODIPINE BESILATE) [Concomitant]
  4. SEPTRA [Concomitant]
  5. ALLOPURINOL [Concomitant]
  6. PEPCID [Concomitant]
  7. CALCIUM (CALCIUM) [Concomitant]
  8. MAGNESIUM OXIDE (MAGNESIUM OXIDE) [Concomitant]
  9. PREDNISONE TAB [Concomitant]

REACTIONS (4)
  - ANAEMIA [None]
  - INTRAVASCULAR PAPILLARY ENDOTHELIAL HYPERPLASIA [None]
  - LUNG INFILTRATION [None]
  - THROMBOCYTOPENIA [None]
